FAERS Safety Report 18244742 (Version 1)
Quarter: 2020Q3

REPORT INFORMATION
  Report Type: Spontaneous
  Country: US (occurrence: US)
  Receive Date: 20200908
  Receipt Date: 20200908
  Transmission Date: 20201103
  Serious: Yes (Hospitalization, Disabling, Other)
  Sender: FDA-Public Use
  Company Number: US-PURDUE-USA-2020-0165043

PATIENT
  Age: 63 Year
  Sex: Female

DRUGS (2)
  1. HYDROCODONE BITARTRATE AND ACETAMINOPHEN [Suspect]
     Active Substance: ACETAMINOPHEN\HYDROCODONE BITARTRATE
     Indication: PAIN
     Dosage: 10 MG, QID
     Route: 048
     Dates: start: 20130315, end: 20130819
  2. HYDROCODONE BITARTRATE AND ACETAMINOPHEN [Suspect]
     Active Substance: ACETAMINOPHEN\HYDROCODONE BITARTRATE
     Dosage: 10 MG, Q4? 6H PRN
     Route: 048
     Dates: start: 20130916, end: 20190715

REACTIONS (29)
  - Intervertebral disc protrusion [Unknown]
  - Depression [Unknown]
  - Lethargy [Unknown]
  - Emotional distress [Unknown]
  - Insomnia [Unknown]
  - Quadriplegia [Unknown]
  - Secretion discharge [Unknown]
  - Nerve injury [Unknown]
  - Hypoaesthesia [Unknown]
  - Dependence [Unknown]
  - Bladder disorder [Unknown]
  - Loss of consciousness [Recovered/Resolved]
  - Dermatitis [Unknown]
  - Arthralgia [Unknown]
  - Muscle spasms [Unknown]
  - Pain [Unknown]
  - Spinal cord injury cervical [Unknown]
  - Loss of personal independence in daily activities [Unknown]
  - Fall [Recovered/Resolved]
  - Head injury [Unknown]
  - Cervical vertebral fracture [Unknown]
  - Decubitus ulcer [Unknown]
  - Gastrointestinal disorder [Unknown]
  - Fatigue [Unknown]
  - Dizziness [Unknown]
  - Neck pain [Unknown]
  - Sleep apnoea syndrome [Unknown]
  - Anxiety [Unknown]
  - Dyspnoea [Unknown]

NARRATIVE: CASE EVENT DATE: 20190715
